FAERS Safety Report 8472725-2 (Version None)
Quarter: 2012Q2

REPORT INFORMATION
  Report Type: 
  Country: None (occurrence: None)
  Receive Date: 20120627
  Receipt Date: 20120613
  Transmission Date: 20120825
  Serious: Yes (Life-Threatening, Hospitalization)
  Sender: FDA-Public Use
  Company Number: DE-FRI-1000031596

PATIENT
  Sex: Male

DRUGS (5)
  1. MIRTAZAPINE [Concomitant]
     Dosage: 45 MG
     Route: 048
     Dates: start: 20120404, end: 20120418
  2. CITALOPRAM HYDROBROMIDE [Suspect]
     Indication: MAJOR DEPRESSION
     Dosage: 20 MG
     Route: 048
     Dates: start: 20120419, end: 20120429
  3. ALCOHOL [Suspect]
     Dosage: OVERDOSE: 0.3 LITER OF HARD LIQUOR
     Route: 048
  4. CITALOPRAM HYDROBROMIDE [Suspect]
     Dosage: OVERDOSE: 400 MG (SINGLE DOSAGE)
     Route: 048
     Dates: start: 20120430, end: 20120430
  5. CITALOPRAM HYDROBROMIDE [Suspect]
     Dosage: PARTLY UP TO 40 MG
     Route: 048

REACTIONS (6)
  - SUICIDE ATTEMPT [None]
  - ALCOHOL INTERACTION [None]
  - INTENTIONAL OVERDOSE [None]
  - SUICIDAL IDEATION [None]
  - AGITATION [None]
  - RESTLESSNESS [None]
